FAERS Safety Report 17843737 (Version 1)
Quarter: 2020Q2

REPORT INFORMATION
  Report Type: Spontaneous
  Country: CA (occurrence: CA)
  Receive Date: 20200531
  Receipt Date: 20200531
  Transmission Date: 20200714
  Serious: Yes (Hospitalization)
  Sender: FDA-Public Use
  Company Number: CA-BAXTER-2020BAX010764

PATIENT
  Age: 64 Year
  Sex: Male

DRUGS (4)
  1. 0.9% SODIUM CHLORIDE INJECTION [Suspect]
     Active Substance: SODIUM CHLORIDE
     Indication: HYPOMAGNESAEMIA
     Dosage: DOSAGE FORM: SOLUTION INTRAVENOUS
     Route: 042
  2. MAGNESIUM SULFATE. [Suspect]
     Active Substance: MAGNESIUM SULFATE
     Indication: HYPOMAGNESAEMIA
     Dosage: DOSAGE FORM: NOT SPECIFIED
     Route: 042
  3. SODIUM PHOSPHATE [Suspect]
     Active Substance: SODIUM PHOSPHATE
     Indication: HYPONATRAEMIA
     Dosage: DOSAGE FORM: SOLUTION
     Route: 042
  4. SODIUM PHOSPHATE [Suspect]
     Active Substance: SODIUM PHOSPHATE
     Indication: HYPOMAGNESAEMIA

REACTIONS (2)
  - Palpitations [Unknown]
  - Dyspnoea [Unknown]
